FAERS Safety Report 8096327-5 (Version None)
Quarter: 2012Q1

REPORT INFORMATION
  Report Type: 
  Country: None (occurrence: None)
  Receive Date: 20120129
  Receipt Date: 20111208
  Transmission Date: 20120608
  Serious: No
  Sender: FDA-Public Use
  Company Number: US-ABBOTT-11P-163-0882231-00

PATIENT
  Age: 14 Year
  Sex: Female

DRUGS (6)
  1. CLARITIN [Concomitant]
     Indication: ALLERGY PROPHYLAXIS
  2. HUMIRA [Suspect]
     Indication: CROHN'S DISEASE
     Dates: start: 20110923
  3. CLARITIN [Concomitant]
     Indication: CROHN'S DISEASE
     Route: 048
  4. BALSALAZIDE DISODIUM [Concomitant]
     Indication: CROHN'S DISEASE
  5. MULTI-VITAMINS [Concomitant]
     Indication: PRODUCT USED FOR UNKNOWN INDICATION
  6. NEXIUM [Concomitant]
     Indication: CROHN'S DISEASE

REACTIONS (1)
  - CONDITION AGGRAVATED [None]
